FAERS Safety Report 21929068 (Version 1)
Quarter: 2023Q1

REPORT INFORMATION
  Report Type: Other
  Country: AR (occurrence: None)
  Receive Date: 20230131
  Receipt Date: 20230131
  Transmission Date: 20230418
  Serious: Yes (Other)
  Sender: FDA-Public Use
  Company Number: AR-ROCHE-3272110

PATIENT
  Age: 45 Year
  Sex: Female

DRUGS (1)
  1. VEMURAFENIB [Suspect]
     Active Substance: VEMURAFENIB
     Indication: Metastases to bone
     Route: 048

REACTIONS (2)
  - Metastases to central nervous system [Unknown]
  - Disease progression [Unknown]
